FAERS Safety Report 23961657 (Version 1)
Quarter: 2024Q2

REPORT INFORMATION
  Report Type: Spontaneous
  Country: US (occurrence: US)
  Receive Date: 20240611
  Receipt Date: 20240611
  Transmission Date: 20240716
  Serious: No
  Sender: FDA-Public Use
  Company Number: US-DRL-USA-LIT/USA/24/0008321

PATIENT
  Age: 29 Year
  Sex: Female

DRUGS (4)
  1. LIDOCAINE [Suspect]
     Active Substance: LIDOCAINE
     Indication: Nipple pain
     Route: 061
  2. DOXEPIN [Suspect]
     Active Substance: DOXEPIN
     Indication: Nipple pain
     Route: 061
  3. GABAPENTIN [Suspect]
     Active Substance: GABAPENTIN
     Indication: Nipple pain
  4. COBALAMIN [Suspect]
     Active Substance: COBALAMIN
     Indication: Nipple pain

REACTIONS (2)
  - Exposure during pregnancy [Unknown]
  - Drug ineffective [Unknown]
